FAERS Safety Report 4628875-1 (Version None)
Quarter: 2005Q2

REPORT INFORMATION
  Report Type: 
  Country: None (occurrence: None)
  Receive Date: 20050406
  Receipt Date: 20050322
  Transmission Date: 20051028
  Serious: Yes (Other)
  Sender: FDA-Public Use
  Company Number: MK200503-0283-1

PATIENT
  Age: 91 Year
  Sex: Female
  Weight: 52 kg

DRUGS (12)
  1. HYDROMORPHONE HCL [Suspect]
     Indication: PAIN
     Dosage: 0.4 MG-5UG/ML
  2. BUPIVACAINE [Suspect]
     Indication: PAIN
     Dosage: 0.075-0.25%
  3. RANITIDINE [Concomitant]
  4. RALOXIFENE HCL [Concomitant]
  5. VERAPAMIL [Concomitant]
  6. VIATMIN B12 [Concomitant]
  7. IRON SUPPLEMENTS [Concomitant]
  8. LATANOPROST [Concomitant]
  9. TIMOLOL MALEATE [Concomitant]
  10. HEPARIN [Concomitant]
  11. LIDOCAINE [Concomitant]
  12. EPINEPHRINE [Concomitant]

REACTIONS (7)
  - AREFLEXIA [None]
  - ASTHENIA [None]
  - LOSS OF PROPRIOCEPTION [None]
  - NERVOUS SYSTEM DISORDER [None]
  - PARALYSIS [None]
  - SENSORY DISTURBANCE [None]
  - SPINAL CORD COMPRESSION [None]
